FAERS Safety Report 4697212-9 (Version None)
Quarter: 2005Q2

REPORT INFORMATION
  Report Type: 
  Country: None (occurrence: None)
  Receive Date: 20050622
  Receipt Date: 20050517
  Transmission Date: 20051028
  Serious: Yes (Other)
  Sender: FDA-Public Use
  Company Number: CA-GLAXOSMITHKLINE-A0559393A

PATIENT
  Age: 73 Year
  Sex: Male
  Weight: 70.5 kg

DRUGS (4)
  1. AVODART [Suspect]
     Dosage: .5MG PER DAY
     Route: 048
     Dates: start: 20050517
  2. PULMICORT [Concomitant]
     Indication: ASTHMA
     Dates: start: 20041013
  3. BRICANYL [Concomitant]
     Indication: ASTHMA
     Dates: start: 20041013
  4. NORVASC [Concomitant]
     Indication: HYPERTENSION
     Dosage: 7.5MG PER DAY
     Route: 048
     Dates: start: 20050208

REACTIONS (1)
  - ASTHMA [None]
